FAERS Safety Report 24458375 (Version 1)
Quarter: 2024Q4

REPORT INFORMATION
  Report Type: Spontaneous
  Country: ID (occurrence: ID)
  Receive Date: 20241018
  Receipt Date: 20241018
  Transmission Date: 20250114
  Serious: No
  Sender: ROCHE
  Company Number: ID-ROCHE-3524290

PATIENT
  Age: 53 Year
  Sex: Male

DRUGS (7)
  1. RITUXIMAB [Suspect]
     Active Substance: RITUXIMAB
     Indication: Central nervous system lymphoma
     Route: 042
     Dates: start: 202005, end: 202009
  2. RITUXIMAB [Suspect]
     Active Substance: RITUXIMAB
     Route: 042
     Dates: start: 20220610
  3. METHOTREXATE [Suspect]
     Active Substance: METHOTREXATE
     Indication: Central nervous system lymphoma
     Dosage: 7 G/M2
     Route: 042
     Dates: start: 20220610
  4. CYCLOPHOSPHAMIDE [Concomitant]
     Active Substance: CYCLOPHOSPHAMIDE
     Dates: start: 202005, end: 202009
  5. DOXORUBICIN [Concomitant]
     Active Substance: DOXORUBICIN
     Dates: start: 202005, end: 202009
  6. VINCRISTINE [Concomitant]
     Active Substance: VINCRISTINE
     Dates: start: 202005, end: 202009
  7. PREDNISONE [Concomitant]
     Active Substance: PREDNISONE

REACTIONS (3)
  - Skin toxicity [Unknown]
  - Haematotoxicity [Unknown]
  - Off label use [Unknown]
